FAERS Safety Report 9601255 (Version 1)
Quarter: 2013Q4

REPORT INFORMATION
  Report Type: Spontaneous
  Country: GB (occurrence: GB)
  Receive Date: 20131006
  Receipt Date: 20131006
  Transmission Date: 20140711
  Serious: Yes (Disabling, Other)
  Sender: FDA-Public Use
  Company Number: GB-MYLANLABS-2013S1021645

PATIENT
  Age: 39 Year
  Sex: Male
  Weight: 76.2 kg

DRUGS (2)
  1. OMEPRAZOLE [Suspect]
     Indication: GASTROOESOPHAGEAL REFLUX DISEASE
     Route: 048
     Dates: start: 20130401, end: 20130801
  2. OMEPRAZOLE [Suspect]
     Indication: GASTROOESOPHAGEAL REFLUX DISEASE
     Route: 048

REACTIONS (10)
  - Abdominal pain [Recovered/Resolved]
  - Dyspnoea [Unknown]
  - Contusion [Recovered/Resolved]
  - Carotid pulse abnormal [Not Recovered/Not Resolved]
  - Pneumothorax [Unknown]
  - Liver disorder [Recovered/Resolved]
  - Night sweats [Unknown]
  - Faeces pale [Recovered/Resolved]
  - Tenderness [Recovered/Resolved]
  - Chromaturia [Recovered/Resolved]
